FAERS Safety Report 9087509 (Version 1)
Quarter: 2013Q1

REPORT INFORMATION
  Report Type: Report from Study
  Country: IT (occurrence: IT)
  Receive Date: 20130201
  Receipt Date: 20130201
  Transmission Date: 20140127
  Serious: Yes (Other)
  Sender: FDA-Public Use
  Company Number: IT-ROCHE-1183363

PATIENT
  Age: 76 Year
  Sex: Female
  Weight: 51 kg

DRUGS (2)
  1. VEMURAFENIB [Suspect]
     Indication: METASTATIC MALIGNANT MELANOMA
     Route: 048
     Dates: start: 20120730, end: 20121015
  2. VEMURAFENIB [Suspect]
     Route: 048
     Dates: start: 20121015

REACTIONS (5)
  - Skin lesion [Recovered/Resolved]
  - Papilloma [Recovered/Resolved]
  - Keratoacanthoma [Recovered/Resolved]
  - Influenza [Recovered/Resolved]
  - Diarrhoea [Recovered/Resolved]
